FAERS Safety Report 9113098 (Version 2)
Quarter: 2013Q3

REPORT INFORMATION
  Report Type: Spontaneous
  Country: DE (occurrence: DE)
  Receive Date: 20130211
  Receipt Date: 20130823
  Transmission Date: 20140515
  Serious: Yes (Hospitalization, Other)
  Sender: FDA-Public Use
  Company Number: PHHY2013DE012564

PATIENT
  Sex: Female

DRUGS (5)
  1. LEPONEX [Suspect]
     Indication: SCHIZOPHRENIA, PARANOID TYPE
     Dosage: 75 MG, (1.5 DOSAGE FORM) QD
     Route: 048
     Dates: start: 200101, end: 20130207
  2. EPIRUBICIN [Suspect]
     Indication: BREAST CANCER
     Dosage: UNK
     Dates: end: 201307
  3. DOCETAXEL [Suspect]
     Indication: BREAST CANCER
     Dosage: UNK UKN, UNK
     Dates: end: 201307
  4. CYCLOPHOSPHAMIDE [Suspect]
     Indication: BREAST CANCER
     Dosage: UNK
     Dates: end: 201307
  5. CITALOPRAM [Concomitant]
     Dosage: 1 DF, QD
     Route: 048
     Dates: end: 201302

REACTIONS (4)
  - Leukopenia [Recovered/Resolved]
  - Convulsion [Unknown]
  - Neutrophil count decreased [Recovered/Resolved]
  - Breast cancer [Not Recovered/Not Resolved]
